FAERS Safety Report 19026775 (Version 1)
Quarter: 2021Q1

REPORT INFORMATION
  Report Type: Spontaneous
  Country: GB (occurrence: GB)
  Receive Date: 20210318
  Receipt Date: 20210318
  Transmission Date: 20210420
  Serious: Yes (Other)
  Sender: FDA-Public Use
  Company Number: GB-BAYER-2021-101343

PATIENT
  Age: 87 Year
  Sex: Female

DRUGS (1)
  1. ESTRADIOL. [Suspect]
     Active Substance: ESTRADIOL
     Indication: HORMONE REPLACEMENT THERAPY
     Dosage: 50 MICROEQUIVALENT, CONT
     Route: 065

REACTIONS (11)
  - Unevaluable event [Unknown]
  - Oedema peripheral [Unknown]
  - Product availability issue [Unknown]
  - Neuropathy peripheral [Unknown]
  - Rash [Unknown]
  - Suspected product quality issue [Unknown]
  - Hypersensitivity [Unknown]
  - Urine odour abnormal [Unknown]
  - Malaise [Unknown]
  - Burning sensation [Unknown]
  - Wrong technique in product usage process [Unknown]
